FAERS Safety Report 4730038-6 (Version None)
Quarter: 2005Q3

REPORT INFORMATION
  Report Type: 
  Country: None (occurrence: None)
  Receive Date: 20050728
  Receipt Date: 20050713
  Transmission Date: 20060218
  Serious: Yes (Other)
  Sender: FDA-Public Use
  Company Number: 2005S1000215

PATIENT
  Age: 67 Year
  Sex: Female

DRUGS (7)
  1. SORIATANE [Suspect]
     Indication: PUSTULAR PSORIASIS
     Dosage: 25 MG;QD;PO
     Route: 048
     Dates: start: 20041206, end: 20041201
  2. SORIATANE [Suspect]
     Dosage: 10 MG;QD;PO
     Route: 048
     Dates: start: 20041230
  3. TRICOR [Concomitant]
  4. LOTRIAL [Concomitant]
  5. NEURONTIN [Concomitant]
  6. DAPSONE [Concomitant]
  7. ANTIBIOTICS [Concomitant]

REACTIONS (5)
  - BLOOD CHOLESTEROL INCREASED [None]
  - DRUG DISPENSING ERROR [None]
  - GLAUCOMA [None]
  - INCORRECT DOSE ADMINISTERED [None]
  - LIPIDS INCREASED [None]
